FAERS Safety Report 7061005-8 (Version None)
Quarter: 2010Q4

REPORT INFORMATION
  Report Type: 
  Country: None (occurrence: None)
  Receive Date: 20101026
  Receipt Date: 20101018
  Transmission Date: 20110411
  Serious: Yes (Other)
  Sender: FDA-Public Use
  Company Number: US-US-EMD SERONO, INC.-7022936

PATIENT
  Sex: Female

DRUGS (3)
  1. REBIF [Suspect]
     Indication: MULTIPLE SCLEROSIS
     Route: 058
     Dates: start: 20080411, end: 20100917
  2. ALBUTEROL [Concomitant]
     Indication: ASTHMA
  3. LEVOTHYROXINE [Concomitant]
     Indication: HYPOTHYROIDISM

REACTIONS (5)
  - BRONCHOPNEUMONIA [None]
  - DEPRESSION [None]
  - LARYNGITIS [None]
  - MULTIPLE SCLEROSIS RELAPSE [None]
  - OROPHARYNGEAL PAIN [None]
